FAERS Safety Report 18542647 (Version 10)
Quarter: 2022Q3

REPORT INFORMATION
  Report Type: Report from Study
  Country: DE (occurrence: DE)
  Receive Date: 20201124
  Receipt Date: 20220818
  Transmission Date: 20221027
  Serious: Yes (Hospitalization, Other)
  Sender: FDA-Public Use
  Company Number: DE-TAKEDA-2020TUS050104

PATIENT
  Age: 30 Year
  Sex: Male

DRUGS (24)
  1. TEDUGLUTIDE [Suspect]
     Active Substance: TEDUGLUTIDE
     Indication: Short-bowel syndrome
     Dosage: 2.4 MILLIGRAM, QD
     Route: 065
     Dates: start: 20160725, end: 20170228
  2. TEDUGLUTIDE [Suspect]
     Active Substance: TEDUGLUTIDE
     Indication: Short-bowel syndrome
     Dosage: 2.4 MILLIGRAM, QD
     Route: 065
     Dates: start: 20160725, end: 20170228
  3. TEDUGLUTIDE [Suspect]
     Active Substance: TEDUGLUTIDE
     Indication: Short-bowel syndrome
     Dosage: 2.4 MILLIGRAM, QD
     Route: 065
     Dates: start: 20160725, end: 20170228
  4. TEDUGLUTIDE [Suspect]
     Active Substance: TEDUGLUTIDE
     Indication: Short-bowel syndrome
     Dosage: 2.4 MILLIGRAM, QD
     Route: 065
     Dates: start: 20160725, end: 20170228
  5. TEDUGLUTIDE [Suspect]
     Active Substance: TEDUGLUTIDE
     Dosage: 2.4 MILLIGRAM, 3/WEEK
     Route: 065
     Dates: start: 20170301, end: 20170602
  6. TEDUGLUTIDE [Suspect]
     Active Substance: TEDUGLUTIDE
     Dosage: 2.4 MILLIGRAM, 3/WEEK
     Route: 065
     Dates: start: 20170301, end: 20170602
  7. TEDUGLUTIDE [Suspect]
     Active Substance: TEDUGLUTIDE
     Dosage: 2.4 MILLIGRAM, 3/WEEK
     Route: 065
     Dates: start: 20170301, end: 20170602
  8. TEDUGLUTIDE [Suspect]
     Active Substance: TEDUGLUTIDE
     Dosage: 2.4 MILLIGRAM, 3/WEEK
     Route: 065
     Dates: start: 20170301, end: 20170602
  9. TEDUGLUTIDE [Suspect]
     Active Substance: TEDUGLUTIDE
     Dosage: 2.6 MILLIGRAM, QD
     Route: 065
     Dates: start: 20200805
  10. TEDUGLUTIDE [Suspect]
     Active Substance: TEDUGLUTIDE
     Dosage: 2.6 MILLIGRAM, QD
     Route: 065
     Dates: start: 20200805
  11. TEDUGLUTIDE [Suspect]
     Active Substance: TEDUGLUTIDE
     Dosage: 2.6 MILLIGRAM, QD
     Route: 065
     Dates: start: 20200805
  12. TEDUGLUTIDE [Suspect]
     Active Substance: TEDUGLUTIDE
     Dosage: 2.6 MILLIGRAM, QD
     Route: 065
     Dates: start: 20200805
  13. TEDUGLUTIDE [Suspect]
     Active Substance: TEDUGLUTIDE
     Dosage: 0.26 MILLILITER, QD
     Route: 065
     Dates: start: 20200805
  14. TEDUGLUTIDE [Suspect]
     Active Substance: TEDUGLUTIDE
     Dosage: 0.26 MILLILITER, QD
     Route: 065
     Dates: start: 20200805
  15. TEDUGLUTIDE [Suspect]
     Active Substance: TEDUGLUTIDE
     Dosage: 0.26 MILLILITER, QD
     Route: 065
     Dates: start: 20200805
  16. TEDUGLUTIDE [Suspect]
     Active Substance: TEDUGLUTIDE
     Dosage: 0.26 MILLILITER, QD
     Route: 065
     Dates: start: 20200805
  17. LEVOMETHADONE [Concomitant]
     Active Substance: LEVOMETHADONE
     Indication: Pain
     Dosage: 5 MILLIGRAM, TID
     Route: 048
     Dates: start: 2020
  18. VITAMIN B12 [Concomitant]
     Active Substance: CYANOCOBALAMIN
     Dosage: 999 (NO UNITS), MONTHLY
     Route: 058
  19. FERINJECT [Concomitant]
     Active Substance: FERRIC CARBOXYMALTOSE
     Dosage: 999 MILLIGRAM
     Route: 042
  20. FERINJECT [Concomitant]
     Active Substance: FERRIC CARBOXYMALTOSE
     Dosage: 999 MILLIGRAM, PRN
     Route: 042
  21. DROPIZOL [Concomitant]
     Indication: Pain
     Dosage: 10 MILLIGRAM, BID
     Route: 048
     Dates: start: 2020
  22. INFLIXIMAB [Concomitant]
     Active Substance: INFLIXIMAB
     Indication: Short-bowel syndrome
     Dosage: 120 MILLIGRAM, Q2WEEKS
     Route: 058
     Dates: start: 20210331
  23. REMICADE [Concomitant]
     Active Substance: INFLIXIMAB
     Indication: Short-bowel syndrome
     Dosage: 100 MILLIGRAM
     Route: 042
     Dates: start: 20210215, end: 20210301
  24. PANTOZOL [Concomitant]
     Active Substance: PANTOPRAZOLE SODIUM
     Dosage: 20 MILLIGRAM, QD
     Route: 065

REACTIONS (6)
  - Fistula of small intestine [Recovered/Resolved]
  - Anastomotic leak [Recovered/Resolved]
  - Device related sepsis [Recovered/Resolved]
  - Gastrointestinal fistula [Not Recovered/Not Resolved]
  - Tooth fracture [Not Recovered/Not Resolved]
  - Oedema peripheral [Not Recovered/Not Resolved]

NARRATIVE: CASE EVENT DATE: 20200101
